FAERS Safety Report 19769068 (Version 1)
Quarter: 2021Q3

REPORT INFORMATION
  Report Type: Spontaneous
  Country: US (occurrence: US)
  Receive Date: 20210831
  Receipt Date: 20210831
  Transmission Date: 20211014
  Serious: No
  Sender: FDA-Public Use
  Company Number: US-PFIZER INC-202101122308

PATIENT
  Age: 82 Year
  Sex: Female
  Weight: 48.99 kg

DRUGS (1)
  1. LEVOTHYROXINE SODIUM. [Suspect]
     Active Substance: LEVOTHYROXINE SODIUM
     Indication: HYPOTHYROIDISM
     Dosage: 100 UG, DAILY ( IN THE MORNING AN HOUR A BEFORE BREAKFAST)
     Route: 048

REACTIONS (1)
  - Weight decreased [Unknown]
